FAERS Safety Report 19763936 (Version 3)
Quarter: 2022Q4

REPORT INFORMATION
  Report Type: Report from Study
  Country: ES (occurrence: ES)
  Receive Date: 20210830
  Receipt Date: 20221221
  Transmission Date: 20230112
  Serious: Yes (Hospitalization)
  Sender: FDA-Public Use
  Company Number: ES-TAKEDA-2021TUS052279

PATIENT
  Sex: Female

DRUGS (16)
  1. TEDUGLUTIDE [Suspect]
     Active Substance: TEDUGLUTIDE
     Indication: Short-bowel syndrome
     Dosage: 2.9 MILLIGRAM, QD
     Route: 042
     Dates: start: 20190311, end: 20200601
  2. TEDUGLUTIDE [Suspect]
     Active Substance: TEDUGLUTIDE
     Indication: Short-bowel syndrome
     Dosage: 2.9 MILLIGRAM, QD
     Route: 042
     Dates: start: 20190311, end: 20200601
  3. TEDUGLUTIDE [Suspect]
     Active Substance: TEDUGLUTIDE
     Indication: Short-bowel syndrome
     Dosage: 2.9 MILLIGRAM, QD
     Route: 042
     Dates: start: 20190311, end: 20200601
  4. TEDUGLUTIDE [Suspect]
     Active Substance: TEDUGLUTIDE
     Indication: Short-bowel syndrome
     Dosage: 2.9 MILLIGRAM, QD
     Route: 042
     Dates: start: 20190311, end: 20200601
  5. TEDUGLUTIDE [Suspect]
     Active Substance: TEDUGLUTIDE
     Dosage: 0.29 MILLIGRAM, QD
     Route: 042
     Dates: start: 20190311, end: 20200601
  6. TEDUGLUTIDE [Suspect]
     Active Substance: TEDUGLUTIDE
     Dosage: 0.29 MILLIGRAM, QD
     Route: 042
     Dates: start: 20190311, end: 20200601
  7. TEDUGLUTIDE [Suspect]
     Active Substance: TEDUGLUTIDE
     Dosage: 0.29 MILLIGRAM, QD
     Route: 042
     Dates: start: 20190311, end: 20200601
  8. TEDUGLUTIDE [Suspect]
     Active Substance: TEDUGLUTIDE
     Dosage: 0.29 MILLIGRAM, QD
     Route: 042
     Dates: start: 20190311, end: 20200601
  9. TEDUGLUTIDE [Suspect]
     Active Substance: TEDUGLUTIDE
     Dosage: 0.4 MILLIGRAM, QD
     Route: 042
     Dates: start: 20200601
  10. TEDUGLUTIDE [Suspect]
     Active Substance: TEDUGLUTIDE
     Dosage: 0.4 MILLIGRAM, QD
     Route: 042
     Dates: start: 20200601
  11. TEDUGLUTIDE [Suspect]
     Active Substance: TEDUGLUTIDE
     Dosage: 0.4 MILLIGRAM, QD
     Route: 042
     Dates: start: 20200601
  12. TEDUGLUTIDE [Suspect]
     Active Substance: TEDUGLUTIDE
     Dosage: 0.4 MILLIGRAM, QD
     Route: 042
     Dates: start: 20200601
  13. SODIUM CITRATE [Concomitant]
     Active Substance: SODIUM CITRATE
     Indication: Metabolic acidosis
     Dosage: 3 MILLILITER, TID
     Route: 048
     Dates: start: 20210330, end: 20210615
  14. BEMIPARIN SODIUM [Concomitant]
     Active Substance: BEMIPARIN SODIUM
     Indication: Prophylaxis
     Dosage: 937 INTERNATIONAL UNIT, QD
     Route: 058
     Dates: start: 2018
  15. CUPRIC SULFATE ANHYDROUS [Concomitant]
     Active Substance: CUPRIC SULFATE ANHYDROUS
     Indication: Prophylaxis
     Dosage: 100 MICROGRAM, TID
     Route: 048
     Dates: start: 2018, end: 20210330
  16. URSODIOL [Concomitant]
     Active Substance: URSODIOL
     Indication: Cholestasis
     Dosage: 62.5 MILLIGRAM, BID
     Route: 048
     Dates: start: 20200601

REACTIONS (1)
  - Metabolic acidosis [Recovered/Resolved]

NARRATIVE: CASE EVENT DATE: 20200101
